FAERS Safety Report 5072826-5 (Version None)
Quarter: 2006Q3

REPORT INFORMATION
  Report Type: 
  Country: None (occurrence: None)
  Receive Date: 20060802
  Receipt Date: 20060717
  Transmission Date: 20061208
  Serious: Yes (Hospitalization)
  Sender: FDA-Public Use
  Company Number: DSA_28496_2006

PATIENT
  Age: 25 Year
  Sex: Female

DRUGS (4)
  1. TAVOR /00273201/ [Suspect]
     Dosage: 5 MG ONCE PO
     Route: 048
     Dates: start: 20060714, end: 20060714
  2. DIAZEPAM [Suspect]
     Dosage: 10 MG ONCE PO
     Route: 048
     Dates: start: 20060714, end: 20060714
  3. LAMICTAL [Suspect]
     Dosage: 100 MG ONCE PO
     Route: 048
     Dates: start: 20060714, end: 20060714
  4. PHENHYDAN /00017401/ [Suspect]
     Dosage: 2250 MG ONCE IV
     Route: 042
     Dates: start: 20060714, end: 20060714

REACTIONS (4)
  - ACCIDENTAL OVERDOSE [None]
  - DEPRESSED LEVEL OF CONSCIOUSNESS [None]
  - MEDICATION ERROR [None]
  - VOMITING [None]
